FAERS Safety Report 12909872 (Version 2)
Quarter: 2016Q4

REPORT INFORMATION
  Report Type: Spontaneous
  Country: ES (occurrence: ES)
  Receive Date: 20161104
  Receipt Date: 20161229
  Transmission Date: 20170207
  Serious: Yes (Death, Other)
  Sender: FDA-Public Use
  Company Number: ES-009507513-1610ESP014701

PATIENT
  Age: 81 Year
  Sex: Male

DRUGS (2)
  1. MK-0000 [Suspect]
     Active Substance: INVESTIGATIONAL PRODUCT
  2. BCG VACCINE [Suspect]
     Active Substance: BCG VACCINE
     Indication: BLADDER CANCER
     Dosage: 54 MG REDUCED IN 50 M3 OF SODIUM CHLORIDE SOLUTION (0.9%)
     Route: 043

REACTIONS (1)
  - Disseminated Bacillus Calmette-Guerin infection [Fatal]
